FAERS Safety Report 20420790 (Version 1)
Quarter: 2022Q1

REPORT INFORMATION
  Report Type: Spontaneous
  Country: US (occurrence: None)
  Receive Date: 20220202
  Receipt Date: 20220202
  Transmission Date: 20220424
  Serious: Yes (Hospitalization)
  Sender: FDA-Public Use
  Company Number: None

PATIENT
  Age: 60 Year
  Sex: Female

DRUGS (1)
  1. CAPECITABINE [Suspect]
     Active Substance: CAPECITABINE
     Indication: Colon cancer
     Dosage: 1500MG BID ORAL
     Route: 048
     Dates: start: 202102

REACTIONS (8)
  - Paraesthesia [None]
  - Nausea [None]
  - Vomiting [None]
  - Somnolence [None]
  - Blood potassium decreased [None]
  - Blood magnesium decreased [None]
  - Dehydration [None]
  - Diarrhoea [None]

NARRATIVE: CASE EVENT DATE: 20220125
